FAERS Safety Report 16784836 (Version 1)
Quarter: 2019Q3

REPORT INFORMATION
  Report Type: Spontaneous
  Country: US (occurrence: US)
  Receive Date: 20190909
  Receipt Date: 20190909
  Transmission Date: 20191005
  Serious: Yes (Hospitalization, Other)
  Sender: FDA-Public Use
  Company Number: US-AMGEN-USASP2019142186

PATIENT
  Age: 33 Year
  Sex: Female

DRUGS (3)
  1. ROMIPLOSTIM [Suspect]
     Active Substance: ROMIPLOSTIM
     Indication: IMMUNE THROMBOCYTOPENIC PURPURA
     Dosage: UNK
     Route: 065
  2. PRIVIGEN [Concomitant]
     Active Substance: HUMAN IMMUNOGLOBULIN G
     Dosage: 5 DAYS
     Route: 042
  3. MEDROXYPROGESTERONE ACETATE. [Concomitant]
     Active Substance: MEDROXYPROGESTERONE ACETATE

REACTIONS (7)
  - Subdural haematoma [Unknown]
  - Emphysematous cystitis [Unknown]
  - Thrombocytopenia [Unknown]
  - Agitation [Unknown]
  - Escherichia bacteraemia [Unknown]
  - Breast cancer metastatic [Unknown]
  - Haemorrhage intracranial [Unknown]
